FAERS Safety Report 12411063 (Version 1)
Quarter: 2016Q2

REPORT INFORMATION
  Report Type: Spontaneous
  Country: US (occurrence: US)
  Receive Date: 20160527
  Receipt Date: 20160527
  Transmission Date: 20160815
  Serious: Yes (Other)
  Sender: FDA-Public Use
  Company Number: US-AXELLIA-000930

PATIENT
  Age: 26 Year
  Sex: Female
  Weight: 39.3 kg

DRUGS (6)
  1. ERYTHROMYCIN. [Concomitant]
     Active Substance: ERYTHROMYCIN
  2. PREDNISONE. [Concomitant]
     Active Substance: PREDNISONE
  3. MEROPENEM. [Concomitant]
     Active Substance: MEROPENEM
  4. TOBRAMYCIN. [Concomitant]
     Active Substance: TOBRAMYCIN
     Dosage: INHALATION
     Route: 055
  5. ZENPEP [Concomitant]
     Active Substance: PANCRELIPASE AMYLASE\PANCRELIPASE LIPASE\PANCRELIPASE PROTEASE
  6. POLYMYXIN B. [Suspect]
     Active Substance: POLYMYXIN B
     Indication: CYSTIC FIBROSIS
     Dosage: 500,000 UNITS PER VIAL
     Route: 042
     Dates: start: 20160513, end: 20160513

REACTIONS (7)
  - Paralysis [Recovered/Resolved]
  - Syncope [Recovered/Resolved]
  - Hypoaesthesia oral [Recovered/Resolved]
  - Tachycardia [Recovered/Resolved]
  - Dyspnoea [Recovered/Resolved]
  - Off label use [Unknown]
  - Flushing [Recovered/Resolved]

NARRATIVE: CASE EVENT DATE: 20160513
